FAERS Safety Report 17003961 (Version 3)
Quarter: 2023Q2

REPORT INFORMATION
  Report Type: Report from Study
  Country: CA (occurrence: None)
  Receive Date: 20191107
  Receipt Date: 20230620
  Transmission Date: 20230721
  Serious: Yes (Other)
  Sender: FDA-Public Use
  Company Number: CA-ORION CORPORATION ORION PHARMA-TREX2019-5253

PATIENT
  Age: 55 Year
  Sex: Female

DRUGS (12)
  1. METHOTREXATE [Suspect]
     Active Substance: METHOTREXATE
     Indication: Product used for unknown indication
  2. COSENTYX [Suspect]
     Active Substance: SECUKINUMAB
     Indication: Psoriasis
  3. COSENTYX [Suspect]
     Active Substance: SECUKINUMAB
  4. COSENTYX [Suspect]
     Active Substance: SECUKINUMAB
  5. COSENTYX [Suspect]
     Active Substance: SECUKINUMAB
  6. COSENTYX [Suspect]
     Active Substance: SECUKINUMAB
  7. COSENTYX [Suspect]
     Active Substance: SECUKINUMAB
  8. COSENTYX [Suspect]
     Active Substance: SECUKINUMAB
  9. BETADERM A [Concomitant]
  10. BETAMETHASONE VALERATE [Concomitant]
     Active Substance: BETAMETHASONE VALERATE
  11. NAPROXEN SODIUM [Concomitant]
     Active Substance: NAPROXEN SODIUM
  12. ALEVE [Concomitant]
     Active Substance: NAPROXEN SODIUM

REACTIONS (16)
  - Therapeutic product effect incomplete [Unknown]
  - Off label use [Unknown]
  - Arthralgia [Unknown]
  - Cystitis [Unknown]
  - Hot flush [Unknown]
  - Influenza [Unknown]
  - Insomnia [Unknown]
  - Joint stiffness [Unknown]
  - Malaise [Unknown]
  - Oropharyngeal pain [Unknown]
  - Pyrexia [Unknown]
  - Urinary tract infection fungal [Unknown]
  - Illness [Unknown]
  - Psoriasis [Unknown]
  - Pain [Unknown]
  - Sleep disorder [Unknown]
